FAERS Safety Report 7544140 (Version 4)
Quarter: 2013Q1

REPORT INFORMATION
  Report Type: Report from Study
  Country: JP (occurrence: JP)
  Receive Date: 20100817
  Receipt Date: 20130204
  Transmission Date: 20140127
  Serious: Yes (Hospitalization)
  Sender: FDA-Public Use
  Company Number: JP-ROCHE-720418

PATIENT
  Age: 47 Year
  Sex: Male

DRUGS (27)
  1. TAKEPRON [Concomitant]
     Indication: PROPHYLAXIS
     Route: 048
  2. FOLIAMIN [Concomitant]
     Indication: PROPHYLAXIS
     Route: 048
  3. CRESTOR [Concomitant]
     Indication: HEPATIC STEATOSIS
     Route: 048
  4. TOCILIZUMAB [Suspect]
     Indication: RHEUMATOID ARTHRITIS
     Route: 041
     Dates: start: 20080707, end: 20080707
  5. TOCILIZUMAB [Suspect]
     Route: 041
     Dates: start: 20080804, end: 20080804
  6. TOCILIZUMAB [Suspect]
     Route: 041
     Dates: start: 20080902, end: 20080902
  7. TOCILIZUMAB [Suspect]
     Route: 041
     Dates: start: 20081007, end: 20081007
  8. TOCILIZUMAB [Suspect]
     Route: 041
     Dates: start: 20081104, end: 20081104
  9. TOCILIZUMAB [Suspect]
     Route: 041
     Dates: start: 20081204, end: 20081204
  10. TOCILIZUMAB [Suspect]
     Route: 041
     Dates: start: 20090106, end: 20090106
  11. TOCILIZUMAB [Suspect]
     Route: 041
     Dates: start: 20090203, end: 20090203
  12. TOCILIZUMAB [Suspect]
     Route: 041
     Dates: start: 20090303, end: 20090303
  13. TOCILIZUMAB [Suspect]
     Route: 041
     Dates: start: 20090402, end: 20090402
  14. TOCILIZUMAB [Suspect]
     Route: 041
     Dates: start: 20090430, end: 20090430
  15. TOCILIZUMAB [Suspect]
     Route: 041
     Dates: start: 20090528, end: 20090528
  16. TOCILIZUMAB [Suspect]
     Route: 041
     Dates: start: 20090625, end: 20090625
  17. TOCILIZUMAB [Suspect]
     Route: 041
     Dates: start: 20090723, end: 20090917
  18. TOCILIZUMAB [Suspect]
     Route: 041
     Dates: start: 20091126, end: 20091126
  19. TOCILIZUMAB [Suspect]
     Route: 041
  20. VOLTAREN [Suspect]
     Indication: RHEUMATOID ARTHRITIS
     Dosage: FORM: PERORAL AGENT.
     Route: 048
  21. VOLTAREN [Suspect]
     Indication: RHEUMATOID ARTHRITIS
     Route: 054
  22. METHOTREXATE [Concomitant]
     Indication: RHEUMATOID ARTHRITIS
     Route: 048
  23. PROGRAF [Concomitant]
     Indication: RHEUMATOID ARTHRITIS
     Route: 048
  24. PROGRAF [Concomitant]
     Route: 048
  25. PREDNISOLONE [Concomitant]
     Dosage: DRUG NAME: PREDOHAN.
     Route: 048
  26. WYPAX [Concomitant]
     Indication: NEUROSIS
     Route: 048
  27. LENDORMIN [Concomitant]
     Indication: NEUROSIS
     Route: 048

REACTIONS (5)
  - Coagulation factor deficiency [Recovered/Resolved]
  - Pain in extremity [Unknown]
  - Upper respiratory tract inflammation [Recovered/Resolved]
  - Hepatic function abnormal [Recovering/Resolving]
  - Hyperlipidaemia [Recovered/Resolved]
